FAERS Safety Report 7964970-7 (Version None)
Quarter: 2011Q4

REPORT INFORMATION
  Report Type: 
  Country: None (occurrence: None)
  Receive Date: 20111208
  Receipt Date: 20111205
  Transmission Date: 20120403
  Serious: Yes (Other)
  Sender: FDA-Public Use
  Company Number: CA-ROCHE-1019445

PATIENT
  Sex: Female

DRUGS (4)
  1. ACTEMRA [Suspect]
     Indication: RHEUMATOID ARTHRITIS
  2. INSULIN [Concomitant]
  3. HYPOGLYCEMIC NOS [Concomitant]
     Route: 048
  4. TRAMADOL HCL [Concomitant]

REACTIONS (1)
  - POLYCHONDRITIS [None]
